FAERS Safety Report 8575119-4 (Version None)
Quarter: 2012Q2

REPORT INFORMATION
  Report Type: 
  Country: None (occurrence: None)
  Receive Date: 20120423
  Receipt Date: 20090818
  Transmission Date: 20120825
  Serious: Yes (Death)
  Sender: FDA-Public Use
  Company Number: PHEH2009US07828

PATIENT
  Age: 56 Year
  Sex: Male

DRUGS (1)
  1. EXJADE [Suspect]
     Dosage: 250 DAILY, ORAL
     Route: 048

REACTIONS (3)
  - NAUSEA [None]
  - NEOPLASM MALIGNANT [None]
  - ABDOMINAL PAIN UPPER [None]
